FAERS Safety Report 5482212-1 (Version None)
Quarter: 2007Q4

REPORT INFORMATION
  Report Type: 
  Country: None (occurrence: None)
  Receive Date: 20071011
  Receipt Date: 20071003
  Transmission Date: 20080405
  Serious: Yes (Hospitalization)
  Sender: FDA-Public Use
  Company Number: HQWYE656617JAN07

PATIENT
  Age: 70 Year
  Sex: Female

DRUGS (5)
  1. PROPRANOLOL HYDROCHLORIDE [Suspect]
     Indication: HYPERTENSION
     Route: 048
     Dates: start: 20061101, end: 20061206
  2. CODOLIPRANE [Suspect]
     Route: 048
  3. ZELITREX [Suspect]
     Indication: HERPES VIRUS INFECTION
     Dosage: UNSPECIFIED
     Route: 048
     Dates: start: 20061206
  4. INEXIUM [Suspect]
     Indication: GASTRIC ULCER
     Route: 048
  5. DOLIPRANE [Suspect]
     Route: 048

REACTIONS (10)
  - ABDOMINAL PAIN UPPER [None]
  - BONE PAIN [None]
  - CHILLS [None]
  - DIARRHOEA [None]
  - DRUG INTOLERANCE [None]
  - HEART RATE DECREASED [None]
  - HYPERHIDROSIS [None]
  - LIPASE INCREASED [None]
  - VERTIGO [None]
  - VOMITING [None]
